FAERS Safety Report 16004071 (Version 2)
Quarter: 2019Q1

REPORT INFORMATION
  Report Type: Spontaneous
  Country: GB (occurrence: GB)
  Receive Date: 20190225
  Receipt Date: 20190226
  Transmission Date: 20190418
  Serious: Yes (Other)
  Sender: FDA-Public Use
  Company Number: GB-ACCORD-108769

PATIENT
  Age: 75 Year
  Sex: Male
  Weight: 73 kg

DRUGS (2)
  1. AMLODIPINE [Concomitant]
     Active Substance: AMLODIPINE BESYLATE
  2. ATORVASTATIN/ATORVASTATIN CALCIUM [Suspect]
     Active Substance: ATORVASTATIN CALCIUM
     Indication: CORONARY ARTERY BYPASS
     Dosage: ALSO RECEIVED 40 MG
     Route: 048
     Dates: start: 20180501, end: 20180718

REACTIONS (3)
  - Abdominal pain [Recovered/Resolved with Sequelae]
  - Flatulence [Recovering/Resolving]
  - Diarrhoea [Recovering/Resolving]

NARRATIVE: CASE EVENT DATE: 20180601
